FAERS Safety Report 9855539 (Version 2)
Quarter: 2014Q1

REPORT INFORMATION
  Report Type: Spontaneous
  Country: PT (occurrence: PT)
  Receive Date: 20140130
  Receipt Date: 20140130
  Transmission Date: 20141002
  Serious: Yes (Other)
  Sender: FDA-Public Use
  Company Number: PT-009507513-1310PRT009730

PATIENT
  Age: 35 Year
  Sex: Female

DRUGS (1)
  1. IMPLANON [Suspect]
     Dosage: FIRST IMPLANT, LEFT ARM
     Route: 030
     Dates: start: 2010, end: 20140103

REACTIONS (7)
  - Surgery [Recovered/Resolved]
  - Device deployment issue [Recovered/Resolved]
  - Device difficult to use [Recovered/Resolved]
  - Incorrect route of drug administration [Recovered/Resolved]
  - Device difficult to use [Unknown]
  - Incorrect drug administration duration [Unknown]
  - General anaesthesia [Recovered/Resolved]
